FAERS Safety Report 4861241-2 (Version None)
Quarter: 2005Q4

REPORT INFORMATION
  Report Type: 
  Country: None (occurrence: None)
  Receive Date: 20051220
  Receipt Date: 20050829
  Transmission Date: 20060501
  Serious: Yes (Hospitalization, Other)
  Sender: FDA-Public Use
  Company Number: US-MERCK-0508USA05100

PATIENT
  Age: 60 Year
  Sex: Female
  Weight: 114 kg

DRUGS (11)
  1. VIOXX [Suspect]
     Indication: PAIN
     Route: 048
     Dates: start: 19991101, end: 20040101
  2. VIOXX [Suspect]
     Indication: ARTHRITIS
     Route: 048
     Dates: start: 19991101, end: 20040101
  3. TYLENOL [Concomitant]
     Route: 065
  4. PROVENTIL [Concomitant]
     Route: 065
  5. IMIPRAMINE OXIDE [Concomitant]
     Route: 065
  6. PROZAC [Concomitant]
     Route: 065
  7. HYDROCHLOROTHIAZIDE AND LOSARTAN POTASSIUM [Concomitant]
     Route: 065
  8. BEXTRA [Concomitant]
     Route: 065
  9. ADVAIR DISKUS 250/50 [Concomitant]
     Route: 055
  10. COMBIVENT [Concomitant]
     Route: 065
  11. ASPIRIN [Concomitant]
     Route: 065

REACTIONS (28)
  - ABDOMINAL PAIN [None]
  - ANGINA PECTORIS [None]
  - APPENDICITIS [None]
  - ARTERIAL OCCLUSIVE DISEASE [None]
  - ASTHMA [None]
  - BUNION [None]
  - CHEST PAIN [None]
  - CHRONIC OBSTRUCTIVE PULMONARY DISEASE [None]
  - COLITIS [None]
  - CORONARY ARTERY DISEASE [None]
  - CORONARY ARTERY OCCLUSION [None]
  - COUGH [None]
  - DYSFUNCTIONAL UTERINE BLEEDING [None]
  - GASTROOESOPHAGEAL REFLUX DISEASE [None]
  - HYPERTENSION [None]
  - INJURY [None]
  - IRRITABLE BOWEL SYNDROME [None]
  - JOINT INJURY [None]
  - MAJOR DEPRESSION [None]
  - OESOPHAGEAL STENOSIS [None]
  - PNEUMONIA [None]
  - RHINITIS ALLERGIC [None]
  - SEBORRHOEIC KERATOSIS [None]
  - STRESS INCONTINENCE [None]
  - THROMBOCYTHAEMIA [None]
  - URINARY INCONTINENCE [None]
  - URINARY TRACT INFECTION [None]
  - UTERINE CANCER [None]
